FAERS Safety Report 7422561-0 (Version None)
Quarter: 2011Q2

REPORT INFORMATION
  Report Type: 
  Country: None (occurrence: None)
  Receive Date: 20110408
  Receipt Date: 20110324
  Transmission Date: 20111010
  Serious: Yes (Death)
  Sender: FDA-Public Use
  Company Number: 018607

PATIENT
  Sex: Male
  Weight: 101.6 kg

DRUGS (4)
  1. VALPROATE SODIUM [Suspect]
     Indication: EPILEPSY
     Dosage: (START DATE: PRE ??/???/2009 ; DOSE: 1000 MG AM AND 1200 MG NOCT ORAL)
     Route: 048
     Dates: end: 20100426
  2. RISPERIDONE [Concomitant]
  3. LACOSAMIDE [Suspect]
     Indication: EPILEPSY
     Dosage: (50 MG QD ORAL)
     Route: 048
     Dates: start: 20100320, end: 20100426
  4. LAMOTRIGINE [Suspect]
     Indication: EPILEPSY
     Dosage: (100 MG BID, START DATE : PRE ??/???/2009 ORAL)
     Route: 048
     Dates: end: 20100426

REACTIONS (4)
  - PULMONARY OEDEMA [None]
  - ASPHYXIA [None]
  - EPILEPSY [None]
  - ANTICONVULSANT DRUG LEVEL DECREASED [None]
